FAERS Safety Report 4305282-2 (Version None)
Quarter: 2004Q1

REPORT INFORMATION
  Report Type: 
  Country: None (occurrence: None)
  Receive Date: 20040226
  Receipt Date: 20030206
  Transmission Date: 20041129
  Serious: No
  Sender: FDA-Public Use
  Company Number: US-BRISTOL-MYERS SQUIBB COMPANY-12181236

PATIENT
  Age: 59 Year
  Sex: Female
  Weight: 59 kg

DRUGS (6)
  1. TAXOL [Suspect]
     Indication: OVARIAN CANCER
     Dosage: OVER 3 HOURS
     Route: 042
     Dates: start: 20030203, end: 20030203
  2. DECADRON [Concomitant]
     Indication: PREMEDICATION
     Route: 048
     Dates: start: 20030202, end: 20020203
  3. BENADRYL [Concomitant]
     Indication: PREMEDICATION
     Route: 042
  4. ANZEMET [Concomitant]
     Indication: PREMEDICATION
     Route: 042
  5. PEPCID [Concomitant]
     Indication: PREMEDICATION
     Route: 042
  6. ATIVAN [Concomitant]
     Indication: PREMEDICATION
     Route: 042

REACTIONS (3)
  - ABDOMINAL PAIN UPPER [None]
  - FEELING HOT [None]
  - FLUSHING [None]
